FAERS Safety Report 6779006-3 (Version None)
Quarter: 2010Q2

REPORT INFORMATION
  Report Type: 
  Country: None (occurrence: None)
  Receive Date: 20100618
  Receipt Date: 20100609
  Transmission Date: 20101027
  Serious: Yes (Other)
  Sender: FDA-Public Use
  Company Number: CL-PFIZER INC-2010073314

PATIENT
  Sex: Female

DRUGS (1)
  1. CELEBRA [Suspect]
     Dosage: 200 MG, UNK

REACTIONS (1)
  - BLOOD PRESSURE DECREASED [None]
